FAERS Safety Report 6596690-8 (Version None)
Quarter: 2010Q1

REPORT INFORMATION
  Report Type: 
  Country: None (occurrence: None)
  Receive Date: 20100212
  Receipt Date: 20090902
  Transmission Date: 20100710
  Serious: No
  Sender: FDA-Public Use
  Company Number: 2009-00567

PATIENT
  Age: 66 Year
  Sex: Female
  Weight: 73.4827 kg

DRUGS (3)
  1. ZICAM COLD REMEDY NASAL GEL [Suspect]
     Dosage: COUPLE TIMES; 2 YRS AGO JAN
  2. ZIAC [Concomitant]
  3. ALEVE (CAPLET) [Concomitant]

REACTIONS (2)
  - AGEUSIA [None]
  - ANOSMIA [None]
